FAERS Safety Report 4595598-7 (Version None)
Quarter: 2005Q1

REPORT INFORMATION
  Report Type: 
  Country: None (occurrence: None)
  Receive Date: 20050224
  Receipt Date: 20050127
  Transmission Date: 20050727
  Serious: Yes (Hospitalization, Other)
  Sender: FDA-Public Use
  Company Number: US_0411108051

PATIENT
  Age: 43 Year
  Sex: Female
  Weight: 75 kg

DRUGS (50)
  1. ZYPREXA [Suspect]
     Indication: SCHIZOPHRENIA
     Dosage: 10 MG/2 AT BEDTIME
     Dates: start: 19980701, end: 20000925
  2. DARVON COMPUND-65 [Concomitant]
  3. ZANTAC [Concomitant]
  4. DEMEROL [Concomitant]
  5. XANAX (ALPRAZOLAM  DUM) [Concomitant]
  6. FIORICET [Concomitant]
  7. ELAVIL (AMITRIPTYLINE HYDROCHLORIDE0 [Concomitant]
  8. LIPITOR (ATORVASTATIN HYDROCHLORIDE) [Concomitant]
  9. NUBAIN [Concomitant]
  10. VISTARIL [Concomitant]
  11. TORADOL [Concomitant]
  12. PRILOSEC (OMEPRAZOLE RATIOPHARM) [Concomitant]
  13. DROPERIDOL [Concomitant]
  14. PHENERGAN [Concomitant]
  15. INDERAL [Concomitant]
  16. SINEQUAN [Concomitant]
  17. CHOLESTYRAMINE [Concomitant]
  18. BENADRYL [Concomitant]
  19. VALIUM [Concomitant]
  20. ELAVIL [Concomitant]
  21. ZYRTEC [Concomitant]
  22. STADOL [Concomitant]
  23. NORTRIPTYLINE HCL [Concomitant]
  24. TRAZODONE HCL [Concomitant]
  25. SUMATRIPTAN [Concomitant]
  26. NASAREL (FLUNISOLIDE) [Concomitant]
  27. FLOVENT [Concomitant]
  28. GENTAMICIN [Concomitant]
  29. RISPERIDONE [Concomitant]
  30. ULTRAM [Concomitant]
  31. PREMARIN [Concomitant]
  32. ALBUTEROL [Concomitant]
  33. FLEXTRA-DS [Concomitant]
  34. GUAIFENEX [Concomitant]
  35. PRAVASTATIN [Concomitant]
  36. CYCLOBENZAPRINE HCL [Concomitant]
  37. SULFAMETHOXAZOLE [Concomitant]
  38. ORLISTAT [Concomitant]
  39. RIZATRIPTAN [Concomitant]
  40. HISTEX [Concomitant]
  41. ZITHROMAX [Concomitant]
  42. ACETAMINOPHEN W/ HYDROCODONE [Concomitant]
  43. PROPOXYPHENE HCL [Concomitant]
  44. PREVACID [Concomitant]
  45. ZOLOFT [Concomitant]
  46. DOLGIC LQ [Concomitant]
  47. IMODIUM [Concomitant]
  48. CATAFLAM [Concomitant]
  49. PRAVACHOL [Concomitant]
  50. CLARITIN-D 24 HOUR [Concomitant]

REACTIONS (10)
  - ARTHRALGIA [None]
  - BACK PAIN [None]
  - BRONCHITIS [None]
  - CLOSED HEAD INJURY [None]
  - FALL [None]
  - MENTAL DISORDER [None]
  - NECK PAIN [None]
  - OVERDOSE [None]
  - PAIN IN EXTREMITY [None]
  - URINARY TRACT INFECTION [None]
